FAERS Safety Report 10005843 (Version 2)
Quarter: 2014Q1

REPORT INFORMATION
  Report Type: Spontaneous
  Country: US (occurrence: US)
  Receive Date: 20140313
  Receipt Date: 20140318
  Transmission Date: 20141002
  Serious: Yes (Death)
  Sender: FDA-Public Use
  Company Number: US-ROCHE-1358461

PATIENT
  Sex: Male

DRUGS (3)
  1. GAZYVA [Suspect]
     Indication: CHRONIC LYMPHOCYTIC LEUKAEMIA
     Dosage: HAD GOTTEN THROUGH THEIR FIRST 2000MG
     Route: 042
  2. GAZYVA [Suspect]
     Route: 042
  3. CHLORAMBUCIL [Concomitant]

REACTIONS (4)
  - Pneumonia [Fatal]
  - Respiratory failure [Fatal]
  - Headache [Unknown]
  - Neuralgia [Unknown]
